FAERS Safety Report 25644338 (Version 1)
Quarter: 2025Q3

REPORT INFORMATION
  Report Type: Spontaneous
  Country: CH (occurrence: CH)
  Receive Date: 20250805
  Receipt Date: 20250805
  Transmission Date: 20251020
  Serious: Yes (Hospitalization, Other)
  Sender: ASTELLAS
  Company Number: None

PATIENT
  Age: 54 Year
  Sex: Female
  Weight: 47 kg

DRUGS (22)
  1. TACROLIMUS [Interacting]
     Active Substance: TACROLIMUS
     Indication: Immunosuppression
     Dosage: 1.5-0-0-0
     Route: 048
     Dates: start: 202306, end: 20250425
  2. TACROLIMUS [Interacting]
     Active Substance: TACROLIMUS
     Route: 048
     Dates: start: 20250502, end: 20250612
  3. TACROLIMUS [Interacting]
     Active Substance: TACROLIMUS
     Route: 048
     Dates: start: 20250621
  4. CETUXIMAB [Suspect]
     Active Substance: CETUXIMAB
     Indication: Colon cancer metastatic
     Route: 042
     Dates: start: 20250403
  5. KRAZATI [Interacting]
     Active Substance: ADAGRASIB
     Indication: Colon cancer metastatic
     Dosage: 3-0-3-0
     Route: 048
     Dates: start: 20250417, end: 20250612
  6. KRAZATI [Interacting]
     Active Substance: ADAGRASIB
     Dosage: 3-0-3-0
     Route: 048
     Dates: start: 20250616, end: 20250618
  7. KRAZATI [Interacting]
     Active Substance: ADAGRASIB
     Dosage: 2-0-2-0
     Route: 048
     Dates: start: 20250619
  8. CERTICAN [Interacting]
     Active Substance: EVEROLIMUS
     Indication: Immunosuppression
     Dosage: 1.5-0-1.5-0
     Route: 048
     Dates: start: 202306, end: 20250424
  9. CERTICAN [Interacting]
     Active Substance: EVEROLIMUS
     Route: 048
     Dates: start: 20250502, end: 20250612
  10. CERTICAN [Interacting]
     Active Substance: EVEROLIMUS
     Route: 048
     Dates: start: 20250616
  11. CALCIUM\CHOLECALCIFEROL [Concomitant]
     Active Substance: CALCIUM\CHOLECALCIFEROL
     Indication: Product used for unknown indication
     Dosage: 500 MG/ 800 IU 1X DAILY
     Route: 048
  12. Zoledronsaeure [Concomitant]
     Indication: Product used for unknown indication
     Dosage: 1XANNUALLY
     Route: 065
     Dates: end: 202408
  13. VIBRAMYCIN [DOXYCYCLINE CARRAGENATE] [Concomitant]
     Indication: Prophylaxis
     Route: 048
     Dates: start: 20250422, end: 20250426
  14. Omeprax [Concomitant]
     Indication: Product used for unknown indication
     Dosage: 1-0-0-0
     Route: 048
  15. MORPHINE SULFATE [Concomitant]
     Active Substance: MORPHINE SULFATE
     Indication: Product used for unknown indication
     Dosage: RETARD?1-0-1-0
     Route: 048
  16. METAMIZOLE [Concomitant]
     Active Substance: METAMIZOLE
     Indication: Product used for unknown indication
     Dosage: 1-1-1-1, 6
     Route: 048
  17. METOCLOPRAMIDE HYDROCHLORIDE [Concomitant]
     Active Substance: METOCLOPRAMIDE HYDROCHLORIDE
     Indication: Product used for unknown indication
     Route: 065
  18. MORPHINE HYDROCHLORIDE [Concomitant]
     Active Substance: MORPHINE HYDROCHLORIDE
     Indication: Product used for unknown indication
     Route: 065
  19. SODIUM PICOSULFATE [Concomitant]
     Active Substance: SODIUM PICOSULFATE
     Indication: Product used for unknown indication
     Route: 065
  20. MOVICOL [Concomitant]
     Active Substance: POLYETHYLENE GLYCOL 3350\POTASSIUM CHLORIDE\SODIUM BICARBONATE\SODIUM CHLORIDE
     Indication: Product used for unknown indication
     Route: 065
  21. Loperamid mepha [Concomitant]
     Indication: Product used for unknown indication
     Route: 065
  22. ONDANSETRON [Concomitant]
     Active Substance: ONDANSETRON
     Indication: Product used for unknown indication
     Route: 065

REACTIONS (5)
  - Gastrointestinal disorder [Recovering/Resolving]
  - Acute kidney injury [Recovering/Resolving]
  - Thrombocytopenia [Recovering/Resolving]
  - Anaemia [Recovering/Resolving]
  - Potentiating drug interaction [Recovering/Resolving]

NARRATIVE: CASE EVENT DATE: 20250423
